FAERS Safety Report 4870956-1 (Version None)
Quarter: 2005Q4

REPORT INFORMATION
  Report Type: 
  Country: None (occurrence: None)
  Receive Date: 20051228
  Receipt Date: 20051128
  Transmission Date: 20060501
  Serious: Yes (Disabling)
  Sender: FDA-Public Use
  Company Number: 343474

PATIENT
  Age: 42 Year
  Sex: Male
  Weight: 111.1 kg

DRUGS (2)
  1. LARIAM [Suspect]
     Dosage: 250 MG, 1 PER 1 WEEK, ORAL
     Route: 048
     Dates: start: 20010705, end: 20010815
  2. ZOLOFT [Concomitant]

REACTIONS (134)
  - ABNORMAL DREAMS [None]
  - ACROCHORDON [None]
  - ADJUSTMENT DISORDER WITH DEPRESSED MOOD [None]
  - AFFECTIVE DISORDER [None]
  - AGGRESSION [None]
  - AMNESIA [None]
  - ANGINA PECTORIS [None]
  - ANGIOTENSIN CONVERTING ENZYME INCREASED [None]
  - ANHEDONIA [None]
  - ANXIETY [None]
  - ARTHRALGIA [None]
  - ASTHENIA [None]
  - ASTHMA [None]
  - BALANCE DISORDER [None]
  - BIPOLAR DISORDER [None]
  - BLOOD CHOLESTEROL ABNORMAL [None]
  - BLOOD CHOLESTEROL INCREASED [None]
  - BLOOD CREATINE PHOSPHOKINASE INCREASED [None]
  - BLOOD GLUCOSE INCREASED [None]
  - BLOOD TRIGLYCERIDES ABNORMAL [None]
  - BLOOD TRIGLYCERIDES INCREASED [None]
  - BRAIN STEM AUDITORY EVOKED RESPONSE ABNORMAL [None]
  - BRONCHITIS [None]
  - BRONCHOSPASM [None]
  - CARDIAC MURMUR [None]
  - CERVICAL SPINE FLATTENING [None]
  - CHEST DISCOMFORT [None]
  - CHEST X-RAY ABNORMAL [None]
  - CLUMSINESS [None]
  - COGNITIVE DISORDER [None]
  - COLD SWEAT [None]
  - COLITIS [None]
  - COLLAGEN-VASCULAR DISEASE [None]
  - CONDITION AGGRAVATED [None]
  - CONFUSIONAL STATE [None]
  - CONSTIPATION [None]
  - CONTUSION [None]
  - COORDINATION ABNORMAL [None]
  - DEHYDRATION [None]
  - DEPRESSION [None]
  - DIARRHOEA [None]
  - DIASTOLIC DYSFUNCTION [None]
  - DIPLOPIA [None]
  - DISLOCATION OF VERTEBRA [None]
  - DISORIENTATION [None]
  - DISTURBANCE IN ATTENTION [None]
  - DIZZINESS [None]
  - DRUG EFFECT DECREASED [None]
  - DRUG INTOLERANCE [None]
  - DRY EYE [None]
  - DRY MOUTH [None]
  - DRY SKIN [None]
  - EMBOLISM [None]
  - EXERCISE LACK OF [None]
  - EXERCISE TOLERANCE DECREASED [None]
  - EXFOLIATIVE RASH [None]
  - FATIGUE [None]
  - FEELING GUILTY [None]
  - FEELINGS OF WORTHLESSNESS [None]
  - GASTROINTESTINAL DISORDER [None]
  - GASTROINTESTINAL TRACT MUCOSAL DISCOLOURATION [None]
  - GASTROOESOPHAGEAL REFLUX DISEASE [None]
  - HAEMORRHOIDS [None]
  - HALLUCINATIONS, MIXED [None]
  - HEADACHE [None]
  - HYPERACUSIS [None]
  - HYPERHIDROSIS [None]
  - HYPERSOMNIA [None]
  - HYPERTENSION [None]
  - IMPAIRED WORK ABILITY [None]
  - INJURY [None]
  - INSOMNIA [None]
  - INTERVERTEBRAL DISC DEGENERATION [None]
  - JAW DISORDER [None]
  - LISTLESS [None]
  - LOW DENSITY LIPOPROTEIN ABNORMAL [None]
  - LOW DENSITY LIPOPROTEIN INCREASED [None]
  - LUNG NEOPLASM [None]
  - MAJOR DEPRESSION [None]
  - MEMORY IMPAIRMENT [None]
  - MENTAL STATUS CHANGES [None]
  - MITRAL VALVE PROLAPSE [None]
  - MULTIPLE ALLERGIES [None]
  - MUSCULOSKELETAL DISCOMFORT [None]
  - MUSCULOSKELETAL STIFFNESS [None]
  - MYALGIA [None]
  - NASOPHARYNGEAL DISORDER [None]
  - NAUSEA [None]
  - NECK PAIN [None]
  - NEOPLASM [None]
  - NIGHTMARE [None]
  - NOCTURIA [None]
  - OBESITY [None]
  - OEDEMA [None]
  - OXYGEN SATURATION DECREASED [None]
  - PALATAL DISORDER [None]
  - PARAESTHESIA [None]
  - PHOTOSENSITIVITY REACTION [None]
  - POSTNASAL DRIP [None]
  - PSYCHOMOTOR HYPERACTIVITY [None]
  - PSYCHOTIC DISORDER [None]
  - PULMONARY GRANULOMA [None]
  - RASH [None]
  - RECTAL HAEMORRHAGE [None]
  - RESTRICTIVE PULMONARY DISEASE [None]
  - RHINITIS [None]
  - RHINITIS PERENNIAL [None]
  - ROAD TRAFFIC ACCIDENT [None]
  - SCHIZOAFFECTIVE DISORDER [None]
  - SCRATCH [None]
  - SELF ESTEEM DECREASED [None]
  - SHOULDER PAIN [None]
  - SINUS TACHYCARDIA [None]
  - SINUSITIS [None]
  - SKIN DISORDER [None]
  - SLEEP APNOEA SYNDROME [None]
  - SNORING [None]
  - SPINAL X-RAY ABNORMAL [None]
  - TINNITUS [None]
  - TOTAL CHOLESTEROL/HDL RATIO ABNORMAL [None]
  - TOTAL CHOLESTEROL/HDL RATIO DECREASED [None]
  - TREATMENT NONCOMPLIANCE [None]
  - TREMOR [None]
  - UPPER RESPIRATORY TRACT INFECTION [None]
  - VENTRICULAR HYPERTROPHY [None]
  - VESTIBULAR DISORDER [None]
  - VIRAL INFECTION [None]
  - VISION BLURRED [None]
  - VISUAL DISTURBANCE [None]
  - VITILIGO [None]
  - WEIGHT DECREASED [None]
  - WEIGHT INCREASED [None]
  - WEIGHT LOSS POOR [None]
  - WHIPLASH INJURY [None]
